FAERS Safety Report 7152368-3 (Version None)
Quarter: 2010Q4

REPORT INFORMATION
  Report Type: 
  Country: None (occurrence: None)
  Receive Date: 20101209
  Receipt Date: 20101209
  Transmission Date: 20110411
  Serious: Yes (Other)
  Sender: FDA-Public Use
  Company Number: None

PATIENT
  Sex: Male
  Weight: 90.7194 kg

DRUGS (1)
  1. ZYPREXA [Suspect]
     Dosage: 1000MG DAILY
     Dates: start: 20000815, end: 20030101

REACTIONS (1)
  - SUICIDAL IDEATION [None]
